FAERS Safety Report 6195571-1 (Version None)
Quarter: 2009Q2

REPORT INFORMATION
  Report Type: 
  Country: None (occurrence: None)
  Receive Date: 20090519
  Receipt Date: 20090512
  Transmission Date: 20091009
  Serious: Yes (Other)
  Sender: FDA-Public Use
  Company Number: PHHY2009MX18600

PATIENT
  Sex: Female

DRUGS (3)
  1. DIOVAN HCT [Suspect]
     Indication: HYPERTENSION
     Dosage: 160/12.5 MG PER DAY
     Route: 048
     Dates: start: 20060214
  2. NIMOTOP [Concomitant]
  3. CINNARIZINE [Concomitant]

REACTIONS (1)
  - BRAIN HYPOXIA [None]
